FAERS Safety Report 12851466 (Version 1)
Quarter: 2016Q4

REPORT INFORMATION
  Report Type: Spontaneous
  Country: US (occurrence: US)
  Receive Date: 20161017
  Receipt Date: 20161017
  Transmission Date: 20170207
  Serious: No
  Sender: FDA-Public Use
  Company Number: US-JNJFOC-20160910156

PATIENT
  Age: 71 Year

DRUGS (2)
  1. NEULASTA [Concomitant]
     Active Substance: PEGFILGRASTIM
     Route: 065
  2. YONDELIS [Suspect]
     Active Substance: TRABECTEDIN
     Indication: METASTATIC NEOPLASM
     Route: 042

REACTIONS (1)
  - White blood cell count increased [Unknown]

NARRATIVE: CASE EVENT DATE: 201609
